FAERS Safety Report 8991665 (Version 1)
Quarter: 2012Q4

REPORT INFORMATION
  Report Type: 
  Country: US (occurrence: US)
  Receive Date: 20121231
  Receipt Date: 20121231
  Transmission Date: 20130627
  Serious: No
  Sender: FDA-Public Use
  Company Number: US-BIOGENIDEC-2012BI064159

PATIENT
  Age: 26 Year
  Sex: Female

DRUGS (1)
  1. TYSABRI [Suspect]
     Indication: MULTIPLE SCLEROSIS
     Route: 042
     Dates: start: 20120313, end: 20120807

REACTIONS (4)
  - Fall [Recovered/Resolved]
  - General physical health deterioration [Unknown]
  - Malaise [Recovered/Resolved]
  - Asthenia [Recovered/Resolved]
